FAERS Safety Report 8015720-X (Version None)
Quarter: 2011Q4

REPORT INFORMATION
  Report Type: 
  Country: None (occurrence: None)
  Receive Date: 20111230
  Receipt Date: 20111228
  Transmission Date: 20120403
  Serious: Yes (Other)
  Sender: FDA-Public Use
  Company Number: PHFR2011GB006490

PATIENT
  Sex: Female
  Weight: 43.51 kg

DRUGS (5)
  1. EXJADE [Suspect]
     Indication: SICKLE CELL ANAEMIA
     Dosage: 20 MG/KG
     Route: 048
  2. ASPIRIN [Concomitant]
     Route: 048
  3. EXJADE [Suspect]
     Dosage: 1250 MG, UNK
     Route: 048
     Dates: start: 20090101
  4. PENICILLIN ^GRUNENTHAL^ [Concomitant]
     Dosage: 500 MG, UNK
     Route: 048
  5. FOLIC ACID [Concomitant]
     Route: 048

REACTIONS (3)
  - ALANINE AMINOTRANSFERASE INCREASED [None]
  - BLOOD BILIRUBIN INCREASED [None]
  - JAUNDICE [None]
